FAERS Safety Report 24672278 (Version 2)
Quarter: 2025Q1

REPORT INFORMATION
  Report Type: Spontaneous
  Country: US (occurrence: US)
  Receive Date: 20241127
  Receipt Date: 20250113
  Transmission Date: 20250409
  Serious: No
  Sender: SANOFI AVENTIS
  Company Number: US-SA-2024SA346348

PATIENT
  Age: 38 Year
  Sex: Female
  Weight: 68.18 kg

DRUGS (14)
  1. DUPIXENT [Suspect]
     Active Substance: DUPILUMAB
     Indication: Dermatitis atopic
     Dosage: 300 MG, QOW
     Route: 058
  2. IRON [Concomitant]
     Active Substance: IRON
  3. VITAMINS [Concomitant]
     Active Substance: VITAMINS
  4. PROAIR RESPICLICK [Concomitant]
     Active Substance: ALBUTEROL SULFATE
  5. FLONASE ALLERGY RELIEF [Concomitant]
     Active Substance: FLUTICASONE PROPIONATE
  6. XYZAL [Concomitant]
     Active Substance: LEVOCETIRIZINE DIHYDROCHLORIDE
  7. ADAPALENE [Concomitant]
     Active Substance: ADAPALENE
  8. BIOTIN [Concomitant]
     Active Substance: BIOTIN
  9. VITAMIN D2 [Concomitant]
     Active Substance: ERGOCALCIFEROL
  10. PEPCID [Concomitant]
     Active Substance: FAMOTIDINE
  11. IPRATROPIUM BROMIDE [Concomitant]
     Active Substance: IPRATROPIUM BROMIDE
  12. PROBIOTIC 10 BILLION DAILY MAINTENANCE [Concomitant]
  13. VITAMINS [Concomitant]
     Active Substance: VITAMINS
  14. PROBIOTICS NOS [Concomitant]
     Active Substance: PROBIOTICS NOS

REACTIONS (4)
  - Migraine [Unknown]
  - Endometrial hyperplasia [Unknown]
  - Skin exfoliation [Recovered/Resolved]
  - Therapeutic response decreased [Unknown]

NARRATIVE: CASE EVENT DATE: 20241101
